FAERS Safety Report 5051561-3 (Version None)
Quarter: 2006Q3

REPORT INFORMATION
  Report Type: 
  Country: None (occurrence: None)
  Receive Date: 20060714
  Receipt Date: 20060516
  Transmission Date: 20061208
  Serious: Yes (Other)
  Sender: FDA-Public Use
  Company Number: PHNU2006DE01991

PATIENT
  Sex: Male

DRUGS (3)
  1. TRENANTONE [Concomitant]
     Indication: PROSTATE CANCER METASTATIC
     Dosage: 1 DF, Q3MO
     Route: 058
     Dates: start: 20050309
  2. RADIOTHERAPY [Concomitant]
     Indication: RADIOTHERAPY TO BONE
     Dosage: 3 GY
     Route: 065
     Dates: start: 20060330, end: 20060412
  3. ZOMETA [Suspect]
     Indication: METASTASES TO BONE
     Dosage: 4 MG, UNK
     Route: 042
     Dates: start: 20050321

REACTIONS (4)
  - BONE DISORDER [None]
  - DENTAL TREATMENT [None]
  - OSTEONECROSIS [None]
  - TOOTH INFECTION [None]
